FAERS Safety Report 6149206-4 (Version None)
Quarter: 2009Q2

REPORT INFORMATION
  Report Type: 
  Country: None (occurrence: None)
  Receive Date: 20090406
  Receipt Date: 20090406
  Transmission Date: 20091009
  Serious: Yes (Hospitalization)
  Sender: FDA-Public Use
  Company Number: None

PATIENT
  Age: 71 Year
  Sex: Female
  Weight: 81.6475 kg

DRUGS (1)
  1. ACTONEL [Suspect]
     Indication: OSTEOPOROSIS
     Dosage: 1 TABLET 1 TIME A DAY PO
     Route: 048
     Dates: start: 20070507, end: 20070507

REACTIONS (5)
  - BONE PAIN [None]
  - DYSPNOEA [None]
  - FEAR [None]
  - PALPITATIONS [None]
  - PANIC ATTACK [None]
